FAERS Safety Report 4459729-1 (Version None)
Quarter: 2004Q3

REPORT INFORMATION
  Report Type: 
  Country: None (occurrence: None)
  Receive Date: 20040922
  Receipt Date: 20040922
  Transmission Date: 20050211
  Serious: Yes (Hospitalization, Disabling)
  Sender: FDA-Public Use
  Company Number: None

PATIENT
  Age: 39 Year
  Sex: Male
  Weight: 81.6475 kg

DRUGS (2)
  1. GENTAMICIN/DEXRORTATORY [Suspect]
     Indication: EAR INFECTION
     Dosage: 3 TO 4   3 TIMES   OTHER
     Route: 050
     Dates: start: 20040401, end: 20040915
  2. GENTAMICIN/DEXRORTATORY [Suspect]
     Indication: FUNGAL INFECTION
     Dosage: 3 TO 4   3 TIMES   OTHER
     Route: 050
     Dates: start: 20040401, end: 20040915

REACTIONS (6)
  - FATIGUE [None]
  - GAIT DISTURBANCE [None]
  - MENTAL DISORDER [None]
  - TINNITUS [None]
  - TYMPANIC MEMBRANE PERFORATION [None]
  - VISION BLURRED [None]
